FAERS Safety Report 21556471 (Version 2)
Quarter: 2022Q4

REPORT INFORMATION
  Report Type: Spontaneous
  Country: SG (occurrence: SG)
  Receive Date: 20221104
  Receipt Date: 20221110
  Transmission Date: 20230113
  Serious: Yes (Other)
  Sender: FDA-Public Use
  Company Number: SG-GLAXOSMITHKLINE-SGCH2022GSK041805

PATIENT

DRUGS (2)
  1. IBUPROFEN [Suspect]
     Active Substance: IBUPROFEN
     Indication: Product used for unknown indication
     Dosage: UNK
     Dates: start: 20190309, end: 20190309
  2. AMPICILLIN [Suspect]
     Active Substance: AMPICILLIN
     Indication: Product used for unknown indication
     Dosage: UNK

REACTIONS (3)
  - Drug hypersensitivity [Unknown]
  - Periorbital oedema [Unknown]
  - Angioedema [Unknown]
